FAERS Safety Report 21444861 (Version 1)
Quarter: 2022Q4

REPORT INFORMATION
  Report Type: Report from Study
  Country: US (occurrence: US)
  Receive Date: 20221012
  Receipt Date: 20221012
  Transmission Date: 20230113
  Serious: Yes (Hospitalization)
  Sender: FDA-Public Use
  Company Number: US-JNJFOC-20220817689

PATIENT
  Age: 72 Year
  Sex: Male
  Weight: 113.2 kg

DRUGS (4)
  1. EPOPROSTENOL SODIUM [Suspect]
     Active Substance: EPOPROSTENOL SODIUM
     Indication: Pulmonary hypertension
     Route: 042
  2. SELEXIPAG [Suspect]
     Active Substance: SELEXIPAG
     Indication: Pulmonary arterial hypertension
     Dosage: THERAPY START DATE: 15/AUG/2022
     Route: 048
  3. MACITENTAN [Suspect]
     Active Substance: MACITENTAN
     Indication: Product used for unknown indication
     Route: 048
  4. ELIQUIS [Concomitant]
     Active Substance: APIXABAN

REACTIONS (8)
  - Gout [Unknown]
  - Flushing [Unknown]
  - Headache [Not Recovered/Not Resolved]
  - Rash [Unknown]
  - Catheterisation cardiac [Unknown]
  - Myalgia [Not Recovered/Not Resolved]
  - Pulmonary arterial pressure abnormal [Unknown]
  - Pain in extremity [Not Recovered/Not Resolved]

NARRATIVE: CASE EVENT DATE: 20220801
